FAERS Safety Report 9933580 (Version 2)
Quarter: 2014Q1

REPORT INFORMATION
  Report Type: Report from Study
  Country: US (occurrence: US)
  Receive Date: 20140228
  Receipt Date: 20140228
  Transmission Date: 20141002
  Serious: No
  Sender: FDA-Public Use
  Company Number: US-MYLANLABS-2013S1025246

PATIENT
  Age: 20 Year
  Sex: Female
  Weight: 54.43 kg

DRUGS (5)
  1. AMNESTEEM CAPSULES [Suspect]
     Indication: ACNE
     Dates: start: 20131022, end: 20131025
  2. AMNESTEEM CAPSULES [Suspect]
     Indication: ACNE
     Dates: start: 20131022, end: 20131025
  3. ADDERALL [Concomitant]
  4. AMBIEN [Concomitant]
  5. INTRAUTERINE CONTRACEPTIVE DEVICE [Concomitant]

REACTIONS (2)
  - Depression [Recovered/Resolved]
  - Asthenia [Recovered/Resolved]
